FAERS Safety Report 13196559 (Version 1)
Quarter: 2017Q1

REPORT INFORMATION
  Report Type: Spontaneous
  Country: US (occurrence: US)
  Receive Date: 20170208
  Receipt Date: 20170208
  Transmission Date: 20170428
  Serious: Yes (Other)
  Sender: FDA-Public Use
  Company Number: US-PFIZER INC-2017049905

PATIENT
  Age: 69 Year
  Sex: Female

DRUGS (1)
  1. VIAGRA [Suspect]
     Active Substance: SILDENAFIL CITRATE
     Dosage: UNK

REACTIONS (6)
  - Product use issue [Unknown]
  - Loss of consciousness [Unknown]
  - Hypersensitivity [Unknown]
  - Fall [Unknown]
  - Ligament rupture [Unknown]
  - Cardiac arrest [Unknown]
